FAERS Safety Report 21457263 (Version 1)
Quarter: 2022Q4

REPORT INFORMATION
  Report Type: Spontaneous
  Country: US (occurrence: US)
  Receive Date: 20221014
  Receipt Date: 20221014
  Transmission Date: 20230113
  Serious: Yes (Hospitalization)
  Sender: FDA-Public Use
  Company Number: US-MYLANLABS-2022M1113852

PATIENT
  Age: 21 Year
  Sex: Female

DRUGS (5)
  1. CLARITHROMYCIN [Suspect]
     Active Substance: CLARITHROMYCIN
     Indication: Device related infection
     Dosage: 500 MILLIGRAM, BID
     Route: 048
  2. CLARITHROMYCIN [Suspect]
     Active Substance: CLARITHROMYCIN
     Indication: Bacterial infection
     Dosage: UNK (RESUMED UNTIL SUSCEPTIBILITY WORKUP RESULTS)
     Route: 048
  3. IMATINIB [Concomitant]
     Active Substance: IMATINIB
     Indication: Mast cell activation syndrome
     Dosage: UNK
     Route: 065
  4. AMIKACIN [Concomitant]
     Active Substance: AMIKACIN
     Indication: Device related infection
     Dosage: 15 MILLIGRAM/KILOGRAM, QD; 950MG (15 MG/KG)
     Route: 042
  5. AMIKACIN [Concomitant]
     Active Substance: AMIKACIN
     Indication: Bacterial infection

REACTIONS (2)
  - Swelling face [Unknown]
  - Reaction to excipient [Unknown]
